FAERS Safety Report 4740221-1 (Version None)
Quarter: 2005Q3

REPORT INFORMATION
  Report Type: 
  Country: None (occurrence: None)
  Receive Date: 20050809
  Receipt Date: 20050809
  Transmission Date: 20060218
  Serious: Yes (Hospitalization)
  Sender: FDA-Public Use
  Company Number: None

PATIENT
  Sex: Female
  Weight: 51.4833 kg

DRUGS (16)
  1. IRESSA [Suspect]
     Indication: PANCREATIC CARCINOMA
     Dosage: 250 MG DAILY ORAL
     Route: 048
     Dates: start: 20050630, end: 20050808
  2. PACLITAXEL [Suspect]
     Indication: PANCREATIC CARCINOMA
     Dosage: 66 MG WEEKLY INTRAVENOUS
     Route: 042
     Dates: start: 20050712, end: 20050801
  3. RADIATION [Concomitant]
  4. ZOFRAN [Concomitant]
  5. LORAZEPAM [Concomitant]
  6. OXYCODONE [Concomitant]
  7. GLYBURIDE AND METFORMIN HCL [Concomitant]
  8. FLUOXETINE [Concomitant]
  9. PROMETHAZINE [Concomitant]
  10. SCOPALOMINE PATCH [Concomitant]
  11. FENTANYL [Concomitant]
  12. NITROGLYCERIN [Concomitant]
  13. ASPIRIN [Concomitant]
  14. TOPROL-XL [Concomitant]
  15. GLUCERNA [Concomitant]
  16. INSULIN [Concomitant]

REACTIONS (4)
  - DEHYDRATION [None]
  - DIZZINESS [None]
  - NAUSEA [None]
  - VOMITING [None]
